FAERS Safety Report 4798140-0 (Version None)
Quarter: 2005Q4

REPORT INFORMATION
  Report Type: 
  Country: None (occurrence: None)
  Receive Date: 20051006
  Receipt Date: 20051006
  Transmission Date: 20060501
  Serious: Yes (Hospitalization)
  Sender: FDA-Public Use
  Company Number: None

PATIENT
  Age: 52 Year
  Sex: Female

DRUGS (8)
  1. TACROLIMUS [Suspect]
     Indication: ALLOGENIC BONE MARROW TRANSPLANTATION THERAPY
     Dosage: 1 MG PO DAILY
     Dates: start: 20040507
  2. ACETAMINOPHEN [Concomitant]
  3. MAALOX FAST BLOCKER [Concomitant]
  4. DIPHENHYDRAMINE HCL [Concomitant]
  5. AMLODIPINE [Concomitant]
  6. DAPSONE [Concomitant]
  7. MAGNESIUM IV [Concomitant]
  8. PROCHLOROPERAZINE [Concomitant]

REACTIONS (6)
  - DELUSION [None]
  - HEADACHE [None]
  - LEUKOENCEPHALOPATHY [None]
  - PARANOIA [None]
  - PSYCHOTIC DISORDER [None]
  - PYREXIA [None]
